FAERS Safety Report 7834135-8 (Version None)
Quarter: 2011Q4

REPORT INFORMATION
  Report Type: 
  Country: None (occurrence: None)
  Receive Date: 20111024
  Receipt Date: 20111011
  Transmission Date: 20120403
  Serious: Yes (Hospitalization)
  Sender: FDA-Public Use
  Company Number: PHHY2011FR90880

PATIENT
  Age: 57 Year
  Sex: Male

DRUGS (1)
  1. RASILEZ [Suspect]
     Indication: HYPERTENSION
     Dosage: 1 DF, DAILY

REACTIONS (4)
  - PLATELET COUNT DECREASED [None]
  - RENAL CANCER [None]
  - RENAL ARTERY STENOSIS [None]
  - BLOOD PRESSURE INCREASED [None]
